FAERS Safety Report 16402204 (Version 5)
Quarter: 2022Q4

REPORT INFORMATION
  Report Type: Spontaneous
  Country: US (occurrence: None)
  Receive Date: 20190607
  Receipt Date: 20221025
  Transmission Date: 20230113
  Serious: Yes (Other)
  Sender: FDA-Public Use
  Company Number: 2018SF14888

PATIENT
  Age: 21271 Day
  Sex: Male

DRUGS (40)
  1. PRILOSEC [Suspect]
     Active Substance: OMEPRAZOLE MAGNESIUM
     Route: 048
     Dates: start: 200608, end: 201012
  2. PREVACID [Suspect]
     Active Substance: LANSOPRAZOLE
     Indication: Gastrooesophageal reflux disease
     Route: 065
     Dates: start: 200608, end: 201012
  3. PREVACID [Suspect]
     Active Substance: LANSOPRAZOLE
     Indication: Gastrooesophageal reflux disease
     Route: 065
     Dates: start: 20060803, end: 20091109
  4. PREVACID [Suspect]
     Active Substance: LANSOPRAZOLE
     Indication: Gastrooesophageal reflux disease
     Route: 065
     Dates: start: 20060803, end: 20100627
  5. PREVACID [Suspect]
     Active Substance: LANSOPRAZOLE
     Indication: Gastrooesophageal reflux disease
     Route: 048
     Dates: start: 20130225
  6. PREVACID [Suspect]
     Active Substance: LANSOPRAZOLE
     Indication: Gastrooesophageal reflux disease
     Dosage: GENERIC (LANSOPRAZOLE)
     Route: 065
     Dates: start: 20060803, end: 20170601
  7. PROTONIX [Suspect]
     Active Substance: PANTOPRAZOLE SODIUM
     Indication: Gastrooesophageal reflux disease
     Route: 065
     Dates: start: 20100212, end: 20101203
  8. PROTONIX [Suspect]
     Active Substance: PANTOPRAZOLE SODIUM
     Indication: Gastrooesophageal reflux disease
     Route: 048
     Dates: start: 20100206, end: 20100210
  9. PROTONIX [Suspect]
     Active Substance: PANTOPRAZOLE SODIUM
     Indication: Gastrooesophageal reflux disease
     Dosage: GENERIC (PANTOPRAZOLE)
     Route: 065
     Dates: start: 20100212, end: 20101203
  10. PROTONIX [Suspect]
     Active Substance: PANTOPRAZOLE SODIUM
     Indication: Gastrooesophageal reflux disease
     Route: 065
     Dates: start: 200608, end: 201012
  11. AMLODIPINE [Concomitant]
     Active Substance: AMLODIPINE BESYLATE
     Indication: Hypertension
     Dates: start: 20130617, end: 20170530
  12. DIAZEPAM [Concomitant]
     Active Substance: DIAZEPAM
  13. DOXYCYCLINE [Concomitant]
     Active Substance: DOXYCYCLINE
  14. ALBUTEROL [Concomitant]
     Active Substance: ALBUTEROL
  15. JANUVIA [Concomitant]
     Active Substance: SITAGLIPTIN PHOSPHATE
  16. NOVOLOG [Concomitant]
     Active Substance: INSULIN ASPART
  17. SPIRIVA [Concomitant]
     Active Substance: TIOTROPIUM BROMIDE MONOHYDRATE
  18. LISINOPRIL [Concomitant]
     Active Substance: LISINOPRIL
  19. ADVAIR HFA [Concomitant]
     Active Substance: FLUTICASONE PROPIONATE\SALMETEROL XINAFOATE
  20. KETOCONAZOLE [Concomitant]
     Active Substance: KETOCONAZOLE
  21. HUMULIN NOS [Concomitant]
     Active Substance: INSULIN HUMAN
  22. LYRICA [Concomitant]
     Active Substance: PREGABALIN
  23. HYDROCHLOROTHIAZIDE [Concomitant]
     Active Substance: HYDROCHLOROTHIAZIDE
  24. METOPROLOL [Concomitant]
     Active Substance: METOPROLOL
     Indication: Hypertension
     Dates: start: 20130316, end: 20160203
  25. TORSEMIDE [Concomitant]
     Active Substance: TORSEMIDE
     Indication: Oedema
     Dates: start: 20130313, end: 20160702
  26. WALGREENS [Concomitant]
  27. AZITHROMYCIN [Concomitant]
     Active Substance: AZITHROMYCIN
  28. CIPROFLOXACIN [Concomitant]
     Active Substance: CIPROFLOXACIN
  29. CELEBREX [Concomitant]
     Active Substance: CELECOXIB
  30. HYDROCODONE [Concomitant]
     Active Substance: HYDROCODONE
  31. TRAMADOL [Concomitant]
     Active Substance: TRAMADOL
     Indication: Pain
     Dates: start: 20130313, end: 20170601
  32. METFORMIN [Concomitant]
     Active Substance: METFORMIN HYDROCHLORIDE
     Indication: Diabetes mellitus
     Dates: start: 20130316, end: 20151012
  33. LANTUS [Concomitant]
     Active Substance: INSULIN GLARGINE
  34. ONE TOUCH ULTRA [Concomitant]
  35. FLUTICASONE [Concomitant]
     Active Substance: FLUTICASONE
  36. KLOR-CON [Concomitant]
     Active Substance: POTASSIUM CHLORIDE
  37. MAGNESIUM OXIDE [Concomitant]
     Active Substance: MAGNESIUM OXIDE
  38. BUDEPROMIDE [Concomitant]
  39. BUPROPION [Concomitant]
     Active Substance: BUPROPION
  40. CLONAZEPAM [Concomitant]
     Active Substance: CLONAZEPAM

REACTIONS (6)
  - Chronic kidney disease [Not Recovered/Not Resolved]
  - Acute kidney injury [Not Recovered/Not Resolved]
  - Renal injury [Unknown]
  - End stage renal disease [Unknown]
  - Tubulointerstitial nephritis [Unknown]
  - Dyspepsia [Unknown]

NARRATIVE: CASE EVENT DATE: 20121201
